FAERS Safety Report 18536351 (Version 1)
Quarter: 2020Q4

REPORT INFORMATION
  Report Type: Spontaneous
  Country: US (occurrence: US)
  Receive Date: 20201123
  Receipt Date: 20201123
  Transmission Date: 20210114
  Serious: Yes (Other)
  Sender: FDA-Public Use
  Company Number: US-GE HEALTHCARE LIFE SCIENCES-OSCN-PR-0611S-0351

PATIENT
  Sex: Male

DRUGS (4)
  1. OMNISCAN [Suspect]
     Active Substance: GADODIAMIDE
     Indication: MAGNETIC RESONANCE IMAGING BRAIN
     Dosage: UNK UNK, SINGLE
     Route: 042
     Dates: start: 2005, end: 2005
  2. OMNISCAN [Suspect]
     Active Substance: GADODIAMIDE
     Indication: ENCEPHALITIS
  3. OMNISCAN [Suspect]
     Active Substance: GADODIAMIDE
     Indication: SEIZURE
  4. OMNISCAN [Suspect]
     Active Substance: GADODIAMIDE
     Indication: END STAGE RENAL DISEASE
     Dosage: 0.27 MMOL/KG, SINGLE
     Route: 042
     Dates: start: 2005, end: 2005

REACTIONS (1)
  - Nephrogenic systemic fibrosis [Unknown]

NARRATIVE: CASE EVENT DATE: 2006
